FAERS Safety Report 8825641 (Version 1)
Quarter: 2012Q4

REPORT INFORMATION
  Report Type: 
  Country: ES (occurrence: ES)
  Receive Date: 20121004
  Receipt Date: 20121004
  Transmission Date: 20130627
  Serious: Yes (Other)
  Sender: FDA-Public Use
  Company Number: ES-ROXANE LABORATORIES, INC.-2012-RO-01940RO

PATIENT
  Age: 24 Year
  Sex: Female

DRUGS (3)
  1. AZATHIOPRINE [Suspect]
     Indication: CROHN^S DISEASE
  2. INFLIXIMAB [Suspect]
     Indication: CROHN^S DISEASE
     Dates: start: 200912
  3. CORTICOSTEROIDS [Suspect]
     Indication: CROHN^S DISEASE
     Route: 042

REACTIONS (2)
  - Disseminated tuberculosis [Unknown]
  - Bronchiolitis [Unknown]
